FAERS Safety Report 4403591-X (Version None)
Quarter: 2004Q3

REPORT INFORMATION
  Report Type: 
  Country: None (occurrence: None)
  Receive Date: 20040719
  Receipt Date: 20040707
  Transmission Date: 20050211
  Serious: Yes (Death, Hospitalization)
  Sender: FDA-Public Use
  Company Number: 163-20785-04070152

PATIENT
  Age: 57 Year
  Sex: Male
  Weight: 88.4514 kg

DRUGS (15)
  1. THALOMID [Suspect]
     Indication: INTERSTITIAL LUNG DISEASE
     Dosage: 150 MG AT BEDTIME, ORAL
     Route: 048
     Dates: start: 20040408, end: 20040625
  2. PREDNISONE TAB [Concomitant]
  3. CYTOXAN [Concomitant]
  4. OXYGEN (OXYGEN) [Concomitant]
  5. AVELOX [Concomitant]
  6. DEXAMETHASONE [Concomitant]
  7. ADVAIR (SERETIDE MITE) [Concomitant]
  8. POTASSIUM (POTASSIUM) [Concomitant]
  9. CALCITONIN (CALCITONIN) [Concomitant]
  10. COUMADIN [Concomitant]
  11. LASIX [Concomitant]
  12. ZYRTEC [Concomitant]
  13. MIACALCIN [Concomitant]
  14. KLOR-CON [Concomitant]
  15. KYTRIL [Concomitant]

REACTIONS (5)
  - ACTIVATED PARTIAL THROMBOPLASTIN TIME PROLONGED [None]
  - BACTERIAL INFECTION [None]
  - INTERNATIONAL NORMALISED RATIO INCREASED [None]
  - PROTHROMBIN TIME PROLONGED [None]
  - RESPIRATORY FAILURE [None]
